FAERS Safety Report 19658608 (Version 2)
Quarter: 2021Q3

REPORT INFORMATION
  Report Type: Spontaneous
  Country: JP (occurrence: JP)
  Receive Date: 20210805
  Receipt Date: 20210923
  Transmission Date: 20211014
  Serious: Yes (Death, Hospitalization, Other)
  Sender: FDA-Public Use
  Company Number: JP-INGENUS PHARMACEUTICALS, LLC-2021INF000114

PATIENT
  Age: 79 Year
  Sex: Male

DRUGS (2)
  1. OXALIPLATIN. [Suspect]
     Active Substance: OXALIPLATIN
     Indication: COLON CANCER STAGE IV
     Dosage: 1200 MILLIGRAM, QD EVERY 3 WEEKS FOR 8 COURSES.
     Route: 065
  2. CAPECITABINE. [Suspect]
     Active Substance: CAPECITABINE
     Indication: COLON CANCER STAGE IV
     Dosage: 1800 MILLIGRAM, QD, ON DAY 1?14,EVERY 3 WEEKS FOR 8 COURSES.
     Route: 065

REACTIONS (2)
  - Hypoaesthesia [Unknown]
  - Acute myeloid leukaemia [Fatal]
